FAERS Safety Report 7591023-2 (Version None)
Quarter: 2011Q3

REPORT INFORMATION
  Report Type: 
  Country: None (occurrence: None)
  Receive Date: 20110705
  Receipt Date: 20110623
  Transmission Date: 20111222
  Serious: Yes (Other)
  Sender: FDA-Public Use
  Company Number: IT-ASTRAZENECA-2010SE45260

PATIENT
  Age: 75 Year
  Sex: Male

DRUGS (4)
  1. IRESSA [Suspect]
     Indication: NON-SMALL CELL LUNG CANCER METASTATIC
     Route: 048
     Dates: start: 20100701, end: 20100817
  2. ATORVASTATIN CALCIUM [Concomitant]
  3. IRESSA [Suspect]
     Dosage: 250 MG FIVE DAYS OUT OF SEVEN (FOR THREE DAYS, ONE DAY STOPPED, FOR TWO DAYS, ONE DAY STOPPED)
     Route: 048
     Dates: start: 20101004
  4. IRESSA [Suspect]
     Dosage: SIX DAYS OUT OF SEVEN
     Route: 048
     Dates: start: 20110101

REACTIONS (6)
  - OFF LABEL USE [None]
  - HYPERBILIRUBINAEMIA [None]
  - CYSTITIS HAEMORRHAGIC [None]
  - HYPERTRANSAMINASAEMIA [None]
  - STRANGURY [None]
  - HAEMATURIA [None]
